FAERS Safety Report 24278314 (Version 1)
Quarter: 2024Q3

REPORT INFORMATION
  Report Type: Spontaneous
  Country: CA (occurrence: CA)
  Receive Date: 20240903
  Receipt Date: 20240903
  Transmission Date: 20241016
  Serious: Yes (Hospitalization)
  Sender: TEVA
  Company Number: CA-TEVA-VS-3237825

PATIENT
  Age: 22 Year
  Sex: Male
  Weight: 105 kg

DRUGS (16)
  1. VINCRISTINE SULFATE [Suspect]
     Active Substance: VINCRISTINE SULFATE
     Indication: Product use in unapproved indication
     Route: 065
  2. CLONAZEPAM [Concomitant]
     Active Substance: CLONAZEPAM
     Indication: Product use in unapproved indication
     Dosage: DOSE FORM: TABLETS
  3. PANTOPRAZOLE [Concomitant]
     Active Substance: PANTOPRAZOLE
     Indication: Product use in unapproved indication
     Route: 065
  4. FILGRASTIM [Concomitant]
     Active Substance: FILGRASTIM
     Indication: Product use in unapproved indication
     Route: 065
  5. MESNA [Concomitant]
     Active Substance: MESNA
     Indication: Product use in unapproved indication
     Route: 065
  6. EMEND [Concomitant]
     Active Substance: APREPITANT
     Indication: Product use in unapproved indication
     Dosage: DOSE FORM: CAPSULES
     Route: 065
  7. PROCHLORPERAZINE [Concomitant]
     Active Substance: PROCHLORPERAZINE
     Indication: Product use in unapproved indication
     Route: 065
  8. DOXORUBICIN [Suspect]
     Active Substance: DOXORUBICIN
     Indication: Product use in unapproved indication
     Route: 065
  9. CYCLOPHOSPHAMIDE [Suspect]
     Active Substance: CYCLOPHOSPHAMIDE
     Indication: Product use in unapproved indication
     Route: 065
  10. DEXAMETHASONE [Concomitant]
     Active Substance: DEXAMETHASONE
     Indication: Product use in unapproved indication
     Route: 065
  11. CIPROFLOXACIN [Concomitant]
     Active Substance: CIPROFLOXACIN
     Indication: Product use in unapproved indication
     Route: 065
  12. POLYETHYLENE GLYCOL [Concomitant]
     Active Substance: POLYETHYLENE GLYCOL
     Indication: Product use in unapproved indication
     Route: 065
  13. ACETAMINOPHEN [Concomitant]
     Active Substance: ACETAMINOPHEN
     Indication: Product use in unapproved indication
     Route: 065
  14. IFOSFAMIDE [Suspect]
     Active Substance: IFOSFAMIDE
     Indication: Product use in unapproved indication
     Dosage: FOR INJECTION, USP, DOSE FORM:POWDER FOR SOLUTION INTRAVENOUS
     Route: 042
  15. OLANZAPINE [Concomitant]
     Active Substance: OLANZAPINE
     Indication: Product use in unapproved indication
     Route: 065
  16. ETOPOSIDE [Suspect]
     Active Substance: ETOPOSIDE
     Indication: Product use in unapproved indication
     Route: 065

REACTIONS (2)
  - Febrile neutropenia [Recovered/Resolved]
  - Off label use [Recovered/Resolved]
